FAERS Safety Report 16795771 (Version 3)
Quarter: 2019Q3

REPORT INFORMATION
  Report Type: Spontaneous
  Country: RU (occurrence: RU)
  Receive Date: 20190911
  Receipt Date: 20190917
  Transmission Date: 20191005
  Serious: Yes (Other)
  Sender: FDA-Public Use
  Company Number: RU-EISAI MEDICAL RESEARCH-EC-2019-061979

PATIENT
  Age: 31 Year
  Sex: Female

DRUGS (2)
  1. LEVETIRACETAM. [Concomitant]
     Active Substance: LEVETIRACETAM
     Indication: EPILEPSY
     Dosage: DOSE AND FREQUENCY UNKNOWN
     Route: 048
     Dates: start: 20180101
  2. FYCOMPA [Suspect]
     Active Substance: PERAMPANEL
     Indication: EPILEPSY
     Route: 048
     Dates: start: 20190506, end: 20190801

REACTIONS (4)
  - Cognitive disorder [Recovering/Resolving]
  - Abnormal behaviour [Recovering/Resolving]
  - Intellectual disability [Recovering/Resolving]
  - Fatigue [Recovering/Resolving]

NARRATIVE: CASE EVENT DATE: 20190701
